APPROVED DRUG PRODUCT: MINOCYCLINE HYDROCHLORIDE
Active Ingredient: MINOCYCLINE HYDROCHLORIDE
Strength: EQ 50MG BASE
Dosage Form/Route: TABLET;ORAL
Application: A215466 | Product #001 | TE Code: AB
Applicant: REGCON HOLDINGS LLC
Approved: May 27, 2022 | RLD: No | RS: No | Type: RX